FAERS Safety Report 23633232 (Version 1)
Quarter: 2024Q1

REPORT INFORMATION
  Report Type: Spontaneous
  Country: US (occurrence: None)
  Receive Date: 20240314
  Receipt Date: 20240314
  Transmission Date: 20240410
  Serious: No
  Sender: FDA-Public Use
  Company Number: None

PATIENT
  Age: 83 Year
  Sex: Male

DRUGS (1)
  1. LENALIDOMIDE [Suspect]
     Active Substance: LENALIDOMIDE
     Indication: Mantle cell lymphoma
     Dosage: FREQUENCY : DAILY;?
     Route: 048
     Dates: start: 20211130

REACTIONS (8)
  - Pneumonia [None]
  - Headache [None]
  - Dizziness [None]
  - Malaise [None]
  - Asthenia [None]
  - Gait disturbance [None]
  - Chest pain [None]
  - Burning sensation [None]

NARRATIVE: CASE EVENT DATE: 20240226
